FAERS Safety Report 20817994 (Version 1)
Quarter: 2022Q2

REPORT INFORMATION
  Report Type: Spontaneous
  Country: CN (occurrence: CN)
  Receive Date: 20220512
  Receipt Date: 20220512
  Transmission Date: 20220721
  Serious: Yes (Death, Other)
  Sender: FDA-Public Use
  Company Number: None

PATIENT
  Age: 74 Year
  Sex: Female

DRUGS (14)
  1. DEXAMETHASONE [Suspect]
     Active Substance: DEXAMETHASONE
     Indication: Plasma cell myeloma
     Dosage: 162 MILLIGRAM, CYCLICAL (VD REGIMEN; 20.25 MG ON DAYS 1, 2, 8, 9, 15, 16, 22 AND 23)
     Route: 065
     Dates: start: 20191230, end: 2020
  2. DEXAMETHASONE [Suspect]
     Active Substance: DEXAMETHASONE
     Indication: Temperature intolerance
     Dosage: 162 MILLIGRAM, CYCLICAL (RD REGIMEN; 20.25 MG ON DAYS 1, 2, 4, 5, 8,9, 11 AND 12)
     Route: 065
     Dates: start: 202004, end: 202004
  3. DEXAMETHASONE [Suspect]
     Active Substance: DEXAMETHASONE
     Indication: Pyrexia
     Dosage: 162 MILLIGRAM, CYCLICAL (ID REGIMEN; 20.25 MG ON DAYS 1, 2, 8, 9, 15, 16, 22, AND 23) (1 CYCLE)
     Route: 065
     Dates: start: 202005, end: 2020
  4. DEXAMETHASONE [Suspect]
     Active Substance: DEXAMETHASONE
     Indication: Chills
     Dosage: UNK
     Route: 065
     Dates: start: 202005
  5. DEXAMETHASONE [Suspect]
     Active Substance: DEXAMETHASONE
     Dosage: 324 MILLIGRAM, CYCLICAL (DARATUMUMAB + PAD; 20.25 MG ON THE DAYS 1, 2, 8, 9, 15, 16, 22 AND 23) (2 C
     Route: 065
     Dates: start: 202005
  6. DOXORUBICIN [Suspect]
     Active Substance: DOXORUBICIN
     Indication: Plasma cell myeloma
     Dosage: 60 MILLIGRAM/SQ. METER,CYCLICAL (2 CYCLE; ON DAY 1) (DARATUMUMAB + PAD)
     Route: 065
     Dates: start: 20200625, end: 2020
  7. BORTEZOMIB [Suspect]
     Active Substance: BORTEZOMIB
     Indication: Plasma cell myeloma
     Dosage: 5.2 MILLIGRAM/SQ. METER, CYCLICAL (VD REGIMEN; 1.3 MG/M2 ON DAYS 1, 8, 15 AND 22)
     Route: 065
     Dates: start: 20191230, end: 2020
  8. BORTEZOMIB [Suspect]
     Active Substance: BORTEZOMIB
     Dosage: 10.4 MILLIGRAM/SQ. METER, CYCLICAL (BORTEZOMIB 1.3 MG/M2 ON DAYS 1, 4, 8, AND 11) (DARATUMUMAB + PAD
     Route: 065
     Dates: start: 20200625, end: 2020
  9. IXAZOMIB [Suspect]
     Active Substance: IXAZOMIB
     Indication: Plasma cell myeloma
     Dosage: 12 MILLIGRAM, CYCLICAL (IXAZOMIB ID REGIMEN; 4 MG ON DAYS 1, 8, AND 15)
     Route: 065
     Dates: start: 202005, end: 2020
  10. DARATUMUMAB [Suspect]
     Active Substance: DARATUMUMAB
     Indication: Plasma cell myeloma
     Dosage: 128 MILLIGRAM/KILOGRAM, CYCLICAL (DARATUMUMAB 16 MG/KG ON DAYS 1, 8, 15 AND 22) (DARATUMUMAB + PAD)
     Route: 065
     Dates: start: 20200625, end: 2020
  11. LENALIDOMIDE [Suspect]
     Active Substance: LENALIDOMIDE
     Indication: Plasma cell myeloma
     Dosage: 210 MILLIGRAM, CYCLICAL (RD REGIMEN; 10 MG FROM DAYS 1 TO 21)
     Route: 065
     Dates: start: 201904, end: 202004
  12. METHYLPREDNISOLONE [Suspect]
     Active Substance: METHYLPREDNISOLONE
     Indication: Chills
     Dosage: UNK
     Route: 065
     Dates: start: 202005
  13. METHYLPREDNISOLONE [Suspect]
     Active Substance: METHYLPREDNISOLONE
     Indication: Temperature intolerance
  14. METHYLPREDNISOLONE [Suspect]
     Active Substance: METHYLPREDNISOLONE
     Indication: Pyrexia

REACTIONS (2)
  - Death [Fatal]
  - Myelosuppression [Recovered/Resolved]

NARRATIVE: CASE EVENT DATE: 20200101
